FAERS Safety Report 18360106 (Version 2)
Quarter: 2021Q2

REPORT INFORMATION
  Report Type: Spontaneous
  Country: US (occurrence: US)
  Receive Date: 20201008
  Receipt Date: 20210402
  Transmission Date: 20210717
  Serious: Yes (Other)
  Sender: FDA-Public Use
  Company Number: US-SA-2020SA275545

PATIENT
  Age: 60 Year
  Sex: Female

DRUGS (1)
  1. ZANTAC [Suspect]
     Active Substance: RANITIDINE HYDROCHLORIDE
     Dosage: 150 MG, QD
     Dates: start: 198901, end: 201901

REACTIONS (2)
  - Disease progression [Not Recovered/Not Resolved]
  - Pancreatic carcinoma stage II [Not Recovered/Not Resolved]

NARRATIVE: CASE EVENT DATE: 20191108
